FAERS Safety Report 16504427 (Version 4)
Quarter: 2019Q4

REPORT INFORMATION
  Report Type: Spontaneous
  Country: US (occurrence: US)
  Receive Date: 20190701
  Receipt Date: 20191107
  Transmission Date: 20200122
  Serious: No
  Sender: FDA-Public Use
  Company Number: US-PFIZER INC-2019279957

PATIENT
  Age: 63 Year
  Sex: Female

DRUGS (9)
  1. DOCETAXEL. [Suspect]
     Active Substance: DOCETAXEL
     Indication: BREAST CANCER METASTATIC
     Dosage: UNK
     Dates: start: 201306, end: 201311
  2. LEVOFLOXACIN. [Concomitant]
     Active Substance: LEVOFLOXACIN
     Dosage: UNK
     Dates: start: 201306, end: 201308
  3. TRASTUZUMAB. [Concomitant]
     Active Substance: TRASTUZUMAB
     Indication: CHEMOTHERAPY
     Dosage: 316 MG (4 MG/KG), AS DIRECTED
     Route: 042
  4. PARAPLATIN [Concomitant]
     Active Substance: CARBOPLATIN
     Indication: CHEMOTHERAPY
     Dosage: UNK
  5. HEPARIN [Concomitant]
     Active Substance: HEPARIN SODIUM
     Dosage: UNK
  6. SODIUM CHLORIDE. [Concomitant]
     Active Substance: SODIUM CHLORIDE
     Dosage: 250 ML, UNK
  7. DOCETAXEL. [Suspect]
     Active Substance: DOCETAXEL
     Dosage: 147 MG, CYCLIC (EVERY THREE WEEKS, 6 CYCLES)
     Dates: start: 20130627, end: 20131009
  8. ATORVASTATIN [Concomitant]
     Active Substance: ATORVASTATIN
     Dosage: UNK
     Dates: start: 201604
  9. PANTOPRAZOLE [Concomitant]
     Active Substance: PANTOPRAZOLE
     Dosage: UNK
     Dates: start: 201306

REACTIONS (5)
  - Hair disorder [Not Recovered/Not Resolved]
  - Alopecia [Not Recovered/Not Resolved]
  - Madarosis [Not Recovered/Not Resolved]
  - Hair colour changes [Not Recovered/Not Resolved]
  - Hair texture abnormal [Not Recovered/Not Resolved]

NARRATIVE: CASE EVENT DATE: 201307
